FAERS Safety Report 8209781-2 (Version None)
Quarter: 2012Q1

REPORT INFORMATION
  Report Type: 
  Country: None (occurrence: None)
  Receive Date: 20120314
  Receipt Date: 20120312
  Transmission Date: 20120608
  Serious: Yes (Death)
  Sender: FDA-Public Use
  Company Number: BR-B.I. PHARMACEUTICALS,INC./RIDGEFIELD-2012-BR-00212BR

PATIENT
  Sex: Female

DRUGS (2)
  1. PRADAXA [Suspect]
     Indication: CEREBROVASCULAR ACCIDENT PROPHYLAXIS
     Dosage: 220 MG
     Route: 048
     Dates: start: 20111101, end: 20120229
  2. PROPAFENONA [Concomitant]
     Indication: ATRIAL FIBRILLATION
     Route: 048
     Dates: end: 20120229

REACTIONS (1)
  - HAEMORRHAGE INTRACRANIAL [None]
